FAERS Safety Report 10599234 (Version 1)
Quarter: 2014Q4

REPORT INFORMATION
  Report Type: Spontaneous
  Country: US (occurrence: US)
  Receive Date: 20141121
  Receipt Date: 20141121
  Transmission Date: 20150529
  Serious: Yes (Death)
  Sender: FDA-Public Use
  Company Number: US-ASTELLAS-2014US018016

PATIENT
  Age: 78 Year
  Sex: Male

DRUGS (1)
  1. PROGRAF [Suspect]
     Active Substance: TACROLIMUS\TACROLIMUS ANHYDROUS
     Indication: LIVER TRANSPLANT
     Dosage: 1 MG, ONCE DAILY IN THE MORNING
     Route: 048
     Dates: start: 19990324, end: 20141014

REACTIONS (1)
  - Cardiac disorder [Fatal]

NARRATIVE: CASE EVENT DATE: 20141014
